FAERS Safety Report 8513732-0 (Version None)
Quarter: 2012Q3

REPORT INFORMATION
  Report Type: 
  Country: None (occurrence: None)
  Receive Date: 20120705
  Receipt Date: 20120625
  Transmission Date: 20120928
  Serious: Yes (Other)
  Sender: FDA-Public Use
  Company Number: AUR-APL-2012-02803

PATIENT
  Age: 71 Year
  Sex: Female

DRUGS (2)
  1. NAPROXEN [Suspect]
     Indication: MYOPATHY
     Dosage: 1500 MG (500 MG, 3 IN 1 D)
  2. PREDNISONE TAB [Suspect]
     Indication: ASTHMA
     Dosage: 15MG DAILY

REACTIONS (6)
  - DIABETIC NEPHROPATHY [None]
  - OSTEOPOROSIS [None]
  - ADRENAL INSUFFICIENCY [None]
  - CUSHING'S SYNDROME [None]
  - DIABETES MELLITUS [None]
  - HYPOALDOSTERONISM [None]
